FAERS Safety Report 23256050 (Version 1)
Quarter: 2023Q4

REPORT INFORMATION
  Report Type: Spontaneous
  Country: US (occurrence: US)
  Receive Date: 20231204
  Receipt Date: 20231204
  Transmission Date: 20240110
  Serious: No
  Sender: FDA-Public Use
  Company Number: US-AMGEN-USASP2023215246

PATIENT
  Age: 69 Year
  Sex: Female

DRUGS (1)
  1. MVASI [Suspect]
     Active Substance: BEVACIZUMAB-AWWB
     Indication: Lung neoplasm malignant
     Dosage: 800 MILLIGRAM (X2 400 MG VIALS)
     Route: 065

REACTIONS (1)
  - Cough [Unknown]

NARRATIVE: CASE EVENT DATE: 20231005
